FAERS Safety Report 4348861-9 (Version None)
Quarter: 2004Q2

REPORT INFORMATION
  Report Type: 
  Country: None (occurrence: None)
  Receive Date: 20040423
  Receipt Date: 20040414
  Transmission Date: 20050107
  Serious: Yes (Life-Threatening, Hospitalization)
  Sender: FDA-Public Use
  Company Number: 2004002430

PATIENT
  Age: 72 Year
  Sex: Male
  Weight: 75 kg

DRUGS (6)
  1. TAHOR (ATORVASTATIN) [Suspect]
     Indication: ARTERITIS CORONARY
     Dosage: 20 MG (DAILY), ORAL
     Route: 048
     Dates: end: 20031105
  2. CLOPIDOGREL (CLOPIDOGREL) [Suspect]
     Indication: ARTERITIS CORONARY
     Dosage: 75 MG (DAILY), ORAL
     Route: 048
  3. FOSINOPRIL SODIUM [Concomitant]
  4. ACEBUTOLOL HCL [Concomitant]
  5. ZOLIPIDEM (ZOLIPIDEM) [Concomitant]
  6. VENLAFAXINE HCL [Concomitant]

REACTIONS (4)
  - COAGULATION FACTOR V LEVEL DECREASED [None]
  - HEPATITIS E ANTIGEN POSITIVE [None]
  - HEPATITIS TOXIC [None]
  - STOOLS WATERY [None]
